FAERS Safety Report 13467212 (Version 2)
Quarter: 2017Q3

REPORT INFORMATION
  Report Type: Report from Study
  Country: US (occurrence: US)
  Receive Date: 20170421
  Receipt Date: 20170803
  Transmission Date: 20171127
  Serious: Yes (Hospitalization)
  Sender: FDA-Public Use
  Company Number: US-BAYER-2017-070657

PATIENT
  Age: 57 Year
  Sex: Male

DRUGS (2)
  1. NEXAVAR [Suspect]
     Active Substance: SORAFENIB
     Indication: HEPATOCELLULAR CARCINOMA
     Dosage: DAILY DOSE 800 MG
     Route: 048
     Dates: start: 20170329, end: 20170410
  2. NEXAVAR [Suspect]
     Active Substance: SORAFENIB
     Indication: HEPATOCELLULAR CARCINOMA
     Dosage: 400 MG, BID
     Route: 048
     Dates: start: 201704

REACTIONS (11)
  - Headache [None]
  - Leukocytosis [None]
  - Chest pain [None]
  - Ileus [None]
  - Abdominal pain [None]
  - Fatigue [None]
  - Hypertension [None]
  - Blood glucose fluctuation [None]
  - Cough [None]
  - Dry skin [None]
  - Pyrexia [None]

NARRATIVE: CASE EVENT DATE: 2017
